FAERS Safety Report 5063116-5 (Version None)
Quarter: 2006Q3

REPORT INFORMATION
  Report Type: 
  Country: None (occurrence: None)
  Receive Date: 20060725
  Receipt Date: 20060725
  Transmission Date: 20061208
  Serious: Yes (Life-Threatening, Hospitalization)
  Sender: FDA-Public Use
  Company Number: None

PATIENT
  Sex: Male

DRUGS (2)
  1. HEPARIN SODIUM 25,000 UNITS AND DEXTROSE 5% [Suspect]
     Indication: ACUTE MYOCARDIAL INFARCTION
     Dosage: 800 UNITS/HOUR IV
     Route: 042
     Dates: start: 20060627, end: 20060627
  2. HEPARIN  5000 UNITS/ML  BAXTER [Suspect]
     Dosage: 5000 UNITS  ONE TIME IV
     Route: 042
     Dates: start: 20060627, end: 20060627

REACTIONS (1)
  - THROMBOCYTOPENIA [None]
